FAERS Safety Report 4946139-3 (Version None)
Quarter: 2006Q1

REPORT INFORMATION
  Report Type: 
  Country: None (occurrence: None)
  Receive Date: 20060118
  Receipt Date: 20050417
  Transmission Date: 20060701
  Serious: Yes (Other)
  Sender: FDA-Public Use
  Company Number: BDI-007127

PATIENT
  Age: 37 Year
  Sex: Female

DRUGS (2)
  1. PROHANCE [Suspect]
     Indication: DIZZINESS
     Dosage: 17 ML ONCE IV
     Route: 042
     Dates: start: 20050415, end: 20050415
  2. PROHANCE [Suspect]
     Indication: NUCLEAR MAGNETIC RESONANCE IMAGING BRAIN
     Dosage: 17 ML ONCE IV
     Route: 042
     Dates: start: 20050415, end: 20050415

REACTIONS (4)
  - COUGH [None]
  - DYSPNOEA [None]
  - PRURITUS [None]
  - URTICARIA [None]
